FAERS Safety Report 22788263 (Version 5)
Quarter: 2025Q1

REPORT INFORMATION
  Report Type: Spontaneous
  Country: US (occurrence: US)
  Receive Date: 20230804
  Receipt Date: 20250102
  Transmission Date: 20250409
  Serious: Yes (Other)
  Sender: SANOFI AVENTIS
  Company Number: US-SA-SAC20230731001049

PATIENT
  Age: 67 Year
  Sex: Female

DRUGS (3)
  1. DUPIXENT [Suspect]
     Active Substance: DUPILUMAB
     Indication: Nasal polyps
     Dosage: 300 MG, QOW
     Route: 058
     Dates: start: 202304
  2. CEFUROXIME [Suspect]
     Active Substance: CEFUROXIME
  3. METHYLPREDNISOLONE [Concomitant]
     Active Substance: METHYLPREDNISOLONE

REACTIONS (8)
  - Periorbital infection [Unknown]
  - Abdominal discomfort [Unknown]
  - Middle ear effusion [Unknown]
  - Ear infection [Recovering/Resolving]
  - Hordeolum [Unknown]
  - Meibomian gland dysfunction [Unknown]
  - Lymphadenopathy [Unknown]
  - Sinusitis [Recovering/Resolving]

NARRATIVE: CASE EVENT DATE: 20230101
